FAERS Safety Report 9418134 (Version 2)
Quarter: 2013Q3

REPORT INFORMATION
  Report Type: Spontaneous
  Country: US (occurrence: US)
  Receive Date: 20130724
  Receipt Date: 20130819
  Transmission Date: 20140515
  Serious: Yes (Hospitalization, Other)
  Sender: FDA-Public Use
  Company Number: US-PFIZER INC-2013212614

PATIENT
  Age: 85 Year
  Sex: Female
  Weight: 56.7 kg

DRUGS (4)
  1. LEVOTHYROXINE SODIUM [Suspect]
     Indication: HYPOTHYROIDISM
     Dosage: 75 UG, 1X/DAY
     Dates: start: 201307, end: 201307
  2. ARMOUR THYROID [Suspect]
     Indication: HYPOTHYROIDISM
     Dosage: 75 UG, 1X/DAY
     Dates: start: 201307, end: 201307
  3. METOPROLOL [Concomitant]
     Indication: HYPERTENSION
     Dosage: 25 MG, 1X/DAY
  4. VYTORIN [Concomitant]
     Indication: BLOOD CHOLESTEROL INCREASED
     Dosage: EZETIMIBE10 MG//SIMVASTATIN 20 MG 1X/DAY

REACTIONS (10)
  - Myocardial infarction [Recovered/Resolved]
  - Stress [Recovered/Resolved]
  - Convulsion [Recovered/Resolved]
  - Blood pressure increased [Recovered/Resolved]
  - Speech disorder [Recovered/Resolved]
  - Confusional state [Recovered/Resolved]
  - Thinking abnormal [Recovered/Resolved]
  - Movement disorder [Recovered/Resolved]
  - Tremor [Recovered/Resolved]
  - Drug ineffective [Not Recovered/Not Resolved]
